FAERS Safety Report 24145707 (Version 1)
Quarter: 2024Q3

REPORT INFORMATION
  Report Type: Report from Study
  Country: EG (occurrence: EG)
  Receive Date: 20240729
  Receipt Date: 20240729
  Transmission Date: 20241017
  Serious: Yes (Hospitalization, Other)
  Sender: ABBVIE
  Company Number: EG-ABBVIE-5853595

PATIENT
  Age: 12 Year
  Sex: Male

DRUGS (5)
  1. HUMIRA [Suspect]
     Active Substance: ADALIMUMAB
     Indication: Uveitis
     Dosage: 1 SYRINGE?FORM STRENGTH WAS 40 MILLIGRAMS
     Route: 058
     Dates: start: 202209, end: 20240719
  2. HUMIRA [Suspect]
     Active Substance: ADALIMUMAB
     Indication: Rheumatoid arthritis
  3. METHOTREXATE [Concomitant]
     Active Substance: METHOTREXATE
     Indication: Product used for unknown indication
  4. SOLU-MEDROL [Suspect]
     Active Substance: METHYLPREDNISOLONE SODIUM SUCCINATE
     Indication: Uveitis
     Route: 065
     Dates: start: 2023
  5. Ecox [Concomitant]
     Indication: Product used for unknown indication

REACTIONS (5)
  - Intracranial pressure increased [Recovered/Resolved]
  - Uveitis [Not Recovered/Not Resolved]
  - Arthritis [Unknown]
  - Drug ineffective [Unknown]
  - Rheumatoid factor increased [Unknown]

NARRATIVE: CASE EVENT DATE: 20230401
